FAERS Safety Report 5818358-5 (Version None)
Quarter: 2008Q3

REPORT INFORMATION
  Report Type: 
  Country: None (occurrence: None)
  Receive Date: 20080721
  Receipt Date: 20080715
  Transmission Date: 20090109
  Serious: Yes (Death)
  Sender: FDA-Public Use
  Company Number: 2007SP010114

PATIENT
  Age: 48 Year
  Sex: Male
  Weight: 48 kg

DRUGS (20)
  1. TEMODAL [Suspect]
     Indication: OLIGODENDROGLIOMA
     Dosage: PO;  200 MG/M2; QD; PO
     Route: 048
     Dates: start: 20050509, end: 20060908
  2. TEMODAL [Suspect]
     Indication: OLIGODENDROGLIOMA
     Dosage: PO;  200 MG/M2; QD; PO
     Route: 048
     Dates: start: 20061127, end: 20061201
  3. TEMODAL [Suspect]
     Indication: OLIGODENDROGLIOMA
     Dosage: PO;  200 MG/M2; QD; PO
     Route: 048
     Dates: start: 20070115, end: 20070119
  4. TEMODAL [Suspect]
     Indication: OLIGODENDROGLIOMA
     Dosage: PO;  200 MG/M2; QD; PO
     Route: 048
     Dates: start: 20070226, end: 20070302
  5. COTRIM [Concomitant]
  6. ZOFRAN [Concomitant]
     Indication: DISEASE RECURRENCE
  7. PRIMPERAN TAB [Concomitant]
  8. LENDORMIN D [Concomitant]
  9. EXCEGRAN [Concomitant]
  10. VONTROL [Concomitant]
  11. MERILSON [Concomitant]
  12. FOIPAN [Concomitant]
  13. GASTER D [Concomitant]
  14. ALOSENN [Concomitant]
  15. PURSENNID [Concomitant]
  16. CLARITHROMYCIN [Concomitant]
  17. FERO-GRADUMET [Concomitant]
  18. CEFAMEZIN [Concomitant]
  19. FIRSTCIN [Concomitant]
  20. PENTCILLIN [Concomitant]

REACTIONS (7)
  - BLOOD CHLORIDE DECREASED [None]
  - BLOOD GLUCOSE INCREASED [None]
  - BLOOD SODIUM DECREASED [None]
  - DISEASE PROGRESSION [None]
  - DISSEMINATED INTRAVASCULAR COAGULATION [None]
  - PNEUMONIA [None]
  - WHITE BLOOD CELL COUNT DECREASED [None]
